FAERS Safety Report 21407223 (Version 1)
Quarter: 2022Q4

REPORT INFORMATION
  Report Type: Spontaneous
  Country: JP (occurrence: JP)
  Receive Date: 20221004
  Receipt Date: 20221004
  Transmission Date: 20230113
  Serious: Yes (Other)
  Sender: FDA-Public Use
  Company Number: JP-ASTELLAS-2022JP014541

PATIENT
  Age: 8 Decade
  Sex: Male

DRUGS (2)
  1. PADCEV [Suspect]
     Active Substance: ENFORTUMAB VEDOTIN-EJFV
     Indication: Product used for unknown indication
     Dosage: UNK, 2 DOSES, UNKNOWN FREQ.
     Route: 065
     Dates: start: 202208, end: 202208
  2. PADCEV [Suspect]
     Active Substance: ENFORTUMAB VEDOTIN-EJFV
     Dosage: 1-STEP DOSE REDUCTION, 2 DOSES, UNKNOWN FREQ.
     Route: 065
     Dates: start: 202209, end: 202209

REACTIONS (3)
  - Adrenal insufficiency [Unknown]
  - Malaise [Unknown]
  - Hypocalcaemia [Unknown]
